FAERS Safety Report 5637767-0 (Version None)
Quarter: 2008Q1

REPORT INFORMATION
  Report Type: 
  Country: None (occurrence: None)
  Receive Date: 20080220
  Receipt Date: 20080207
  Transmission Date: 20080703
  Serious: Yes (Death)
  Sender: FDA-Public Use
  Company Number: 2008AL000663

PATIENT
  Age: 66 Year
  Sex: Female

DRUGS (6)
  1. QUINAPRIL HCL AND HYDROCHLOROTHIAZIDE [Suspect]
     Indication: HYPERTENSION
     Dosage: X1; PO
     Route: 048
     Dates: start: 20060401, end: 20060401
  2. NORVASC [Concomitant]
  3. ZOCOR [Concomitant]
  4. VYTORIN [Concomitant]
  5. PAIN MEDICATION [Concomitant]
  6. PAIN INJECTION [Concomitant]

REACTIONS (4)
  - ANAPHYLACTIC SHOCK [None]
  - COMA [None]
  - DIARRHOEA [None]
  - VOMITING [None]
